FAERS Safety Report 5808362-5 (Version None)
Quarter: 2008Q3

REPORT INFORMATION
  Report Type: 
  Country: None (occurrence: None)
  Receive Date: 20080714
  Receipt Date: 20080703
  Transmission Date: 20090109
  Serious: Yes (Other)
  Sender: FDA-Public Use
  Company Number: PHHY2008DE13126

PATIENT
  Age: 53 Year
  Sex: Female

DRUGS (1)
  1. TEGRETOL [Suspect]
     Indication: CONVULSION
     Dosage: 100 MG/DAY
     Dates: start: 20040101

REACTIONS (1)
  - BONE DENSITY DECREASED [None]
